FAERS Safety Report 23594902 (Version 1)
Quarter: 2024Q1

REPORT INFORMATION
  Report Type: Spontaneous
  Country: DE (occurrence: DE)
  Receive Date: 20240305
  Receipt Date: 20240305
  Transmission Date: 20240410
  Serious: Yes (Other)
  Sender: FDA-Public Use
  Company Number: DE-AMAROX PHARMA GMBH-AMR2021DE01693

PATIENT
  Age: 67 Year
  Sex: Female

DRUGS (12)
  1. LEUCOVORIN [Suspect]
     Active Substance: LEUCOVORIN\LEUCOVORIN CALCIUM
     Indication: Adenocarcinoma pancreas
     Dosage: 400 MILLIGRAM/SQ. METER
     Route: 065
     Dates: start: 201704, end: 201709
  2. LEUCOVORIN [Suspect]
     Active Substance: LEUCOVORIN\LEUCOVORIN CALCIUM
     Dosage: UNK
     Route: 065
     Dates: start: 201807, end: 201809
  3. LEUCOVORIN [Suspect]
     Active Substance: LEUCOVORIN\LEUCOVORIN CALCIUM
     Dosage: UNK
     Route: 065
     Dates: start: 201812, end: 201905
  4. OXALIPLATIN [Suspect]
     Active Substance: OXALIPLATIN
     Indication: Adenocarcinoma pancreas
     Dosage: UNK
     Route: 065
     Dates: start: 201807
  5. OXALIPLATIN [Suspect]
     Active Substance: OXALIPLATIN
     Dosage: 85 MILLIGRAM/SQ. METER
     Route: 065
     Dates: start: 201704, end: 201709
  6. IRINOTECAN [Suspect]
     Active Substance: IRINOTECAN
     Indication: Adenocarcinoma pancreas
     Dosage: 180 MICROGRAM/SQ. METER
     Route: 065
     Dates: start: 201704, end: 201709
  7. IRINOTECAN [Suspect]
     Active Substance: IRINOTECAN
     Dosage: UNK(WAS REDUCED TO 75 PERCENT OF THE INITIAL DOSE )
     Route: 065
     Dates: start: 201807, end: 201809
  8. IRINOTECAN [Suspect]
     Active Substance: IRINOTECAN
     Dosage: UNK(WITH 75 PERCENT IRINOTECAN DOSE )
     Route: 065
     Dates: start: 201812, end: 201905
  9. FLUOROURACIL [Suspect]
     Active Substance: FLUOROURACIL
     Indication: Adenocarcinoma pancreas
     Dosage: 2400 MILLIGRAM/SQ. METER
     Route: 065
     Dates: start: 201704, end: 201709
  10. FLUOROURACIL [Suspect]
     Active Substance: FLUOROURACIL
     Dosage: UNK
     Route: 065
     Dates: start: 201807, end: 201809
  11. FLUOROURACIL [Suspect]
     Active Substance: FLUOROURACIL
     Dosage: UNK
     Route: 065
     Dates: start: 201812, end: 201905
  12. FLUOROURACIL\IRINOTECAN\LEUCOVORIN\OXALIPLATIN [Suspect]
     Active Substance: FLUOROURACIL\IRINOTECAN\LEUCOVORIN\OXALIPLATIN
     Indication: Product used for unknown indication
     Dosage: UNK
     Route: 065
     Dates: start: 201709

REACTIONS (3)
  - Diarrhoea [Unknown]
  - Polyneuropathy [Unknown]
  - Dysaesthesia pharynx [Unknown]
